FAERS Safety Report 10009433 (Version 2)
Quarter: 2014Q1

REPORT INFORMATION
  Report Type: Spontaneous
  Country: US (occurrence: US)
  Receive Date: 20140313
  Receipt Date: 20140313
  Transmission Date: 20141002
  Serious: No
  Sender: FDA-Public Use
  Company Number: US-INCYTE CORPORATION-2012IN000935

PATIENT
  Sex: Female
  Weight: 65.31 kg

DRUGS (6)
  1. JAKAFI [Suspect]
     Indication: MYELOFIBROSIS
     Dosage: 10 MG, BID
     Route: 048
     Dates: start: 20120131
  2. LASIX [Concomitant]
  3. SPIRONOLACTONE [Concomitant]
  4. NADOLOL [Concomitant]
  5. LEVOXYL [Concomitant]
  6. OMEPRAZOLE [Concomitant]

REACTIONS (1)
  - Fluid retention [Not Recovered/Not Resolved]
